FAERS Safety Report 19682881 (Version 1)
Quarter: 2021Q3

REPORT INFORMATION
  Report Type: Report from Study
  Country: None (occurrence: US)
  Receive Date: 20210811
  Receipt Date: 20210811
  Transmission Date: 20211014
  Serious: Yes (Hospitalization)
  Sender: FDA-Public Use
  Company Number: US-ABBVIE-21K-163-4021967-00

PATIENT
  Age: 26 Year
  Sex: Male
  Weight: 51.76 kg

DRUGS (4)
  1. HUMIRA [Suspect]
     Active Substance: ADALIMUMAB
     Dosage: CITRATE FREE
     Route: 058
     Dates: start: 202107, end: 20210727
  2. VITAMIN D3 [Concomitant]
     Active Substance: CHOLECALCIFEROL
     Indication: ANAEMIA
  3. IRON [Concomitant]
     Active Substance: IRON
     Indication: ANAEMIA
  4. HUMIRA [Suspect]
     Active Substance: ADALIMUMAB
     Indication: COLITIS ULCERATIVE
     Dosage: CITRATE FREE
     Route: 058
     Dates: start: 202105, end: 202107

REACTIONS (5)
  - Abdominal infection [Not Recovered/Not Resolved]
  - Intra-abdominal fluid collection [Not Recovered/Not Resolved]
  - Drug ineffective [Unknown]
  - Oral fungal infection [Recovered/Resolved]
  - Oral fungal infection [Recovering/Resolving]

NARRATIVE: CASE EVENT DATE: 202106
